APPROVED DRUG PRODUCT: MECLIZINE HYDROCHLORIDE
Active Ingredient: MECLIZINE HYDROCHLORIDE
Strength: 25MG
Dosage Form/Route: TABLET;ORAL
Application: A084092 | Product #003 | TE Code: AA
Applicant: SCIEGEN PHARMACEUTICALS INC
Approved: May 22, 1989 | RLD: No | RS: No | Type: RX